FAERS Safety Report 8961463 (Version 1)
Quarter: 2012Q4

REPORT INFORMATION
  Report Type: 
  Country: US (occurrence: US)
  Receive Date: 20121213
  Receipt Date: 20121213
  Transmission Date: 20130627
  Serious: No
  Sender: FDA-Public Use
  Company Number: US-ALLERGAN-1200785US

PATIENT

DRUGS (2)
  1. ACZONE [Suspect]
     Indication: ACNE
     Dosage: UNK
     Route: 061
     Dates: end: 20120118
  2. EPIDUO [Suspect]
     Indication: ACNE

REACTIONS (3)
  - Sensory disturbance [Unknown]
  - Skin irritation [Unknown]
  - Erythema [Unknown]
